FAERS Safety Report 5487860-0 (Version None)
Quarter: 2007Q4

REPORT INFORMATION
  Report Type: 
  Country: None (occurrence: None)
  Receive Date: 20071017
  Receipt Date: 20071008
  Transmission Date: 20080405
  Serious: Yes (Hospitalization)
  Sender: FDA-Public Use
  Company Number: TR-NOVOPROD-268268

PATIENT
  Sex: Female

DRUGS (1)
  1. ESTROFEM [Suspect]
     Route: 048

REACTIONS (1)
  - BREAST CANCER [None]
